FAERS Safety Report 10029907 (Version 1)
Quarter: 2014Q1

REPORT INFORMATION
  Report Type: Spontaneous
  Country: US (occurrence: None)
  Receive Date: 20140306
  Receipt Date: 20140306
  Transmission Date: 20141002
  Serious: Yes (Disabling)
  Sender: FDA-Public Use
  Company Number: 163-21880-12110872

PATIENT
  Age: 66 Year
  Sex: Male

DRUGS (9)
  1. REVLIMID (LENALIDOMIDE) (5 MILLIGRAM, CAPSULES) [Suspect]
     Indication: PLASMA CELL MYELOMA
     Dosage: 5 MG, 28 IN 28 D, PO
     Route: 048
     Dates: start: 20101013, end: 20121023
  2. ACIPHEX (RABEPRAZOLE SODIUM) [Concomitant]
  3. ATIVAN (LORAZEPAM) [Concomitant]
  4. AVAPRO (IRBESARTAN) [Concomitant]
  5. CELEXA (CITALOPRAM HYDROBROMIDE) [Concomitant]
  6. COREG (CARVEDILOL) [Concomitant]
  7. DIGOXIN (DIGOXIN) [Concomitant]
  8. LISINOPRIL (LISINOPRIL) [Concomitant]
  9. METFORMIN HCL (METFORMIN HYDROCHLORIDE) [Concomitant]

REACTIONS (2)
  - Anaemia [None]
  - Vomiting [None]
